FAERS Safety Report 12519771 (Version 1)
Quarter: 2016Q2

REPORT INFORMATION
  Report Type: Spontaneous
  Country: US (occurrence: US)
  Receive Date: 20160630
  Receipt Date: 20160630
  Transmission Date: 20160815
  Serious: Yes (Other)
  Sender: FDA-Public Use
  Company Number: US-FRI-1000085689

PATIENT
  Sex: Female

DRUGS (2)
  1. VIIBRYD [Suspect]
     Active Substance: VILAZODONE HYDROCHLORIDE
  2. BRAIN MEDICATION [Suspect]
     Active Substance: UNSPECIFIED INGREDIENT

REACTIONS (4)
  - Brain operation [Unknown]
  - Confusional state [Unknown]
  - Depression [Unknown]
  - Cardiac disorder [Unknown]
